FAERS Safety Report 5574461-9 (Version None)
Quarter: 2007Q4

REPORT INFORMATION
  Report Type: 
  Country: None (occurrence: None)
  Receive Date: 20071226
  Receipt Date: 20071226
  Transmission Date: 20080405
  Serious: Yes (Hospitalization)
  Sender: FDA-Public Use
  Company Number: None

PATIENT
  Age: 51 Year
  Sex: Male
  Weight: 80.7403 kg

DRUGS (1)
  1. CYMBALTA [Suspect]
     Indication: ANXIETY
     Dates: start: 20070524, end: 20070531

REACTIONS (9)
  - AMNESIA [None]
  - ANXIETY [None]
  - COMA [None]
  - DEPRESSION [None]
  - HYPOXIC ENCEPHALOPATHY [None]
  - IMPAIRED WORK ABILITY [None]
  - MIGRAINE [None]
  - OVERDOSE [None]
  - SUICIDE ATTEMPT [None]
